FAERS Safety Report 4678862-2 (Version None)
Quarter: 2005Q2

REPORT INFORMATION
  Report Type: 
  Country: None (occurrence: None)
  Receive Date: 20050531
  Receipt Date: 20050515
  Transmission Date: 20051028
  Serious: Yes (Other)
  Sender: FDA-Public Use
  Company Number: 2005074534

PATIENT
  Age: 1 Year
  Sex: Male
  Weight: 10.8863 kg

DRUGS (2)
  1. BENADRYL [Suspect]
     Indication: RHINORRHOEA
     Dosage: 1/2 TSP PRN, ORAL
     Route: 048
     Dates: start: 20050513, end: 20050514
  2. RONATIC (CHLORPHENAMINE TANNATE, MEPYRAMINE TANNATE, PHENYLEPHRINE TAN [Suspect]
     Indication: NASAL CONGESTION
     Dosage: 1/2 TSP PRN, ORAL
     Route: 048

REACTIONS (8)
  - AGGRESSION [None]
  - AGITATION [None]
  - ANXIETY [None]
  - CONFUSIONAL STATE [None]
  - HALLUCINATION, VISUAL [None]
  - RASH PRURITIC [None]
  - RHINORRHOEA [None]
  - SLEEP DISORDER [None]
